FAERS Safety Report 4482468-8 (Version None)
Quarter: 2004Q4

REPORT INFORMATION
  Report Type: 
  Country: None (occurrence: None)
  Receive Date: 20041022
  Receipt Date: 20040930
  Transmission Date: 20050328
  Serious: Yes (Other)
  Sender: FDA-Public Use
  Company Number: FR-GLAXOSMITHKLINE-B0347170A

PATIENT
  Age: 58 Year
  Sex: Female
  Weight: 57 kg

DRUGS (7)
  1. TELZIR [Suspect]
     Indication: HIV INFECTION
     Dosage: 700MG TWICE PER DAY
     Route: 048
     Dates: start: 20040915
  2. ABACAVIR [Suspect]
     Indication: HIV INFECTION
     Dosage: 300MG TWICE PER DAY
     Route: 048
     Dates: start: 20040915
  3. PARACETAMOL [Suspect]
     Indication: HEADACHE
     Dosage: 1000MG FOUR TIMES PER DAY
     Route: 048
     Dates: start: 20040924, end: 20040926
  4. VIDEX [Concomitant]
     Indication: HIV INFECTION
     Dosage: 400MG PER DAY
     Route: 048
     Dates: start: 20040915
  5. LAMIVUDINE [Concomitant]
     Indication: HIV INFECTION
     Dosage: 150MG TWICE PER DAY
     Route: 048
     Dates: start: 19990512
  6. RITONAVIR [Concomitant]
     Indication: HIV INFECTION
     Dosage: 100MG TWICE PER DAY
     Route: 048
     Dates: start: 20040915
  7. LEVOTHYROX [Concomitant]
     Indication: THYROIDECTOMY
     Dosage: 100MCG PER DAY
     Route: 048
     Dates: start: 20040817

REACTIONS (2)
  - CYTOLYTIC HEPATITIS [None]
  - RASH [None]
